FAERS Safety Report 19716723 (Version 1)
Quarter: 2021Q3

REPORT INFORMATION
  Report Type: Spontaneous
  Country: BR (occurrence: BR)
  Receive Date: 20210819
  Receipt Date: 20210819
  Transmission Date: 20211014
  Serious: Yes (Other)
  Sender: FDA-Public Use
  Company Number: BR-B.I. PHARMACEUTICALS,INC./RIDGEFIELD-2021-BI-121984

PATIENT
  Sex: Male

DRUGS (12)
  1. LEXOTAN [Concomitant]
     Active Substance: BROMAZEPAM
     Indication: PRODUCT USED FOR UNKNOWN INDICATION
     Dosage: CONTINUOUS USE
  2. SYNTHROID [Concomitant]
     Active Substance: LEVOTHYROXINE SODIUM
     Indication: PRODUCT USED FOR UNKNOWN INDICATION
     Dosage: CONTINUOUS USE
  3. ASPIRINA [Concomitant]
     Active Substance: ASPIRIN
     Indication: PRODUCT USED FOR UNKNOWN INDICATION
     Dosage: CONTINUOUS USE
  4. VITAMINS NOS [Concomitant]
     Active Substance: VITAMINS
     Indication: PRODUCT USED FOR UNKNOWN INDICATION
     Dosage: CONTINUOUS USE
  5. TRAYENTA [Suspect]
     Active Substance: LINAGLIPTIN
     Indication: PRODUCT USED FOR UNKNOWN INDICATION
     Dosage: CONTINUOUS USE
  6. GLIFAGE [Concomitant]
     Active Substance: METFORMIN HYDROCHLORIDE
     Indication: PRODUCT USED FOR UNKNOWN INDICATION
     Dosage: CONTINUOUS USE
  7. PANCREATINA [Concomitant]
     Indication: PRODUCT USED FOR UNKNOWN INDICATION
     Dosage: CONTINUOUS USE
  8. DELLER [DESLORATADINE] [Concomitant]
     Indication: DEPRESSION
     Dosage: CONTINUOUS USE
  9. RECONTER [Concomitant]
     Active Substance: ESCITALOPRAM OXALATE
     Indication: DEPRESSION
     Dosage: CONTINUOUS USE
  10. IRON [Concomitant]
     Active Substance: IRON
     Indication: PRODUCT USED FOR UNKNOWN INDICATION
     Dosage: CONTINUOUS USE
  11. CRESTOR [Concomitant]
     Active Substance: ROSUVASTATIN CALCIUM
     Indication: BLOOD CHOLESTEROL
     Dosage: CONTINUOUS USE
  12. LUFTAL [SIMETICONE] [Concomitant]
     Indication: PRODUCT USED FOR UNKNOWN INDICATION
     Dosage: CONTINUOUS USE

REACTIONS (4)
  - Cholangitis [Unknown]
  - Kidney infection [Unknown]
  - Ill-defined disorder [Unknown]
  - Adenocarcinoma [Unknown]
